FAERS Safety Report 7742156-9 (Version None)
Quarter: 2011Q3

REPORT INFORMATION
  Report Type: 
  Country: None (occurrence: None)
  Receive Date: 20110912
  Receipt Date: 20110906
  Transmission Date: 20111222
  Serious: Yes (Hospitalization)
  Sender: FDA-Public Use
  Company Number: PHHY2011KR79153

PATIENT
  Sex: Female

DRUGS (2)
  1. ZOLEDRONOC ACID [Suspect]
     Indication: OSTEOPOROSIS
     Dosage: 5 MG, YEARLY ONCE
     Route: 042
     Dates: start: 20090325
  2. ZOLEDRONOC ACID [Suspect]
     Dosage: 5 MG, YEARLY ONCE
     Route: 042
     Dates: start: 20100415

REACTIONS (2)
  - FALL [None]
  - WRIST FRACTURE [None]
